FAERS Safety Report 5252922-X (Version None)
Quarter: 2007Q1

REPORT INFORMATION
  Report Type: 
  Country: None (occurrence: None)
  Receive Date: 20070301
  Receipt Date: 20070226
  Transmission Date: 20070707
  Serious: Yes (Hospitalization)
  Sender: FDA-Public Use
  Company Number: US-AVENTIS-200711709GDDC

PATIENT
  Age: 82 Year
  Sex: Male

DRUGS (21)
  1. GLIMEPIRIDE [Suspect]
     Indication: DIABETES MELLITUS
     Route: 048
     Dates: start: 20010531
  2. LANTUS [Suspect]
     Indication: DIABETES MELLITUS
     Dates: start: 20030411
  3. AVANDIA [Suspect]
     Route: 048
     Dates: start: 20010326
  4. INSULIN ASPART [Suspect]
     Indication: DIABETES MELLITUS
     Dosage: DOSE: 4 TO 8
     Dates: start: 20030710
  5. OMEPRAZOLE [Concomitant]
  6. TAMSULOSIN HCL [Concomitant]
  7. FINASTERIDE [Concomitant]
  8. FLUNISOLIDE [Concomitant]
  9. NITROGLYCERIN [Concomitant]
  10. QUININE SULFATE [Concomitant]
  11. LEVOTHYROXINE SODIUM [Concomitant]
  12. POTASSIUM CHLORIDE [Concomitant]
  13. FUROSEMIDE [Concomitant]
  14. SIMVASTATIN [Concomitant]
  15. ALBUTEROL SULFATE [Concomitant]
  16. METOPROLOL TARTRATE [Concomitant]
  17. ASPIRIN [Concomitant]
  18. GABAPENTIN [Concomitant]
  19. OXYCODONE W/PARACETAMOL [Concomitant]
  20. GLUCOSAMINE + CHONDROITIN [Concomitant]
  21. PSYLLIUM HUSK [Concomitant]

REACTIONS (6)
  - CARDIAC FAILURE CONGESTIVE [None]
  - DYSPNOEA [None]
  - HYPOGLYCAEMIA [None]
  - HYPOXIA [None]
  - PITTING OEDEMA [None]
  - WAIST CIRCUMFERENCE INCREASED [None]
